FAERS Safety Report 26060752 (Version 2)
Quarter: 2025Q4

REPORT INFORMATION
  Report Type: Spontaneous
  Country: JP (occurrence: JP)
  Receive Date: 20251118
  Receipt Date: 20251121
  Transmission Date: 20260118
  Serious: Yes (Death, Other)
  Sender: NOVARTIS
  Company Number: JP-002147023-NVSJ2025JP011130

PATIENT

DRUGS (1)
  1. KYMRIAH [Suspect]
     Active Substance: TISAGENLECLEUCEL
     Indication: Diffuse large B-cell lymphoma
     Route: 042

REACTIONS (4)
  - T-cell lymphoma [Fatal]
  - Bone marrow infiltration [Fatal]
  - Second primary malignancy [Fatal]
  - Haemophagocytic lymphohistiocytosis [Unknown]
